FAERS Safety Report 4737809-0 (Version None)
Quarter: 2005Q3

REPORT INFORMATION
  Report Type: 
  Country: None (occurrence: None)
  Receive Date: 20050802
  Receipt Date: 20050718
  Transmission Date: 20060218
  Serious: Yes (Disabling)
  Sender: FDA-Public Use
  Company Number: 2005-0008476

PATIENT
  Age: 47 Year
  Sex: Male
  Weight: 91 kg

DRUGS (4)
  1. VIREAD [Suspect]
     Dosage: 300 MG, 1 IN 1 D, ORAL
     Route: 048
     Dates: start: 20050607, end: 20050616
  2. LAMIVUDINE [Concomitant]
  3. NEVIRAPINE [Concomitant]
  4. CHOLESTYRAMINE [Concomitant]

REACTIONS (5)
  - ARTHROPATHY [None]
  - FEELING HOT [None]
  - JOINT STIFFNESS [None]
  - MUSCULOSKELETAL STIFFNESS [None]
  - SKIN DISCOLOURATION [None]
